FAERS Safety Report 4485333-5 (Version None)
Quarter: 2004Q3

REPORT INFORMATION
  Report Type: 
  Country: None (occurrence: None)
  Receive Date: 20040921
  Receipt Date: 20040408
  Transmission Date: 20050211
  Serious: Yes (Hospitalization, Other)
  Sender: FDA-Public Use
  Company Number: 163-20785-04040226

PATIENT
  Age: 63 Year
  Sex: Male
  Weight: 97.7 kg

DRUGS (16)
  1. THALOMID [Suspect]
     Indication: GLIOBLASTOMA MULTIFORME
     Dosage: 400 MG, QHS, ORAL; 300 MG, QHS, ORAL
     Route: 048
     Dates: start: 20040101, end: 20040402
  2. THALOMID [Suspect]
     Indication: GLIOBLASTOMA MULTIFORME
     Dosage: 400 MG, QHS, ORAL; 300 MG, QHS, ORAL
     Route: 048
     Dates: start: 20040412
  3. CPT-11 (IRINOTECAN) (UNKNOWN) [Suspect]
     Indication: GLIOBLASTOMA MULTIFORME
     Dosage: 275 MG, EVERY WEEK TIMES 4 WEEKS, INTRAVENOUS
     Route: 042
     Dates: start: 20040223, end: 20040223
  4. CPT-11 (IRINOTECAN) (UNKNOWN) [Suspect]
     Indication: GLIOBLASTOMA MULTIFORME
     Dosage: 275 MG, EVERY WEEK TIMES 4 WEEKS, INTRAVENOUS
     Route: 042
     Dates: start: 20040301, end: 20040301
  5. CPT-11 (IRINOTECAN) (UNKNOWN) [Suspect]
     Indication: GLIOBLASTOMA MULTIFORME
     Dosage: 275 MG, EVERY WEEK TIMES 4 WEEKS, INTRAVENOUS
     Route: 042
     Dates: start: 20040308, end: 20040308
  6. CPT-11 (IRINOTECAN) (UNKNOWN) [Suspect]
     Indication: GLIOBLASTOMA MULTIFORME
     Dosage: 275 MG, EVERY WEEK TIMES 4 WEEKS, INTRAVENOUS
     Route: 042
     Dates: start: 20040315, end: 20040315
  7. CPT-11 (IRINOTECAN) (UNKNOWN) [Suspect]
     Indication: GLIOBLASTOMA MULTIFORME
     Dosage: 275 MG, EVERY WEEK TIMES 4 WEEKS, INTRAVENOUS
     Route: 042
     Dates: start: 20040412, end: 20040412
  8. CPT-11 (IRINOTECAN) (UNKNOWN) [Suspect]
     Indication: GLIOBLASTOMA MULTIFORME
     Dosage: 275 MG, EVERY WEEK TIMES 4 WEEKS, INTRAVENOUS
     Route: 042
     Dates: start: 20040419, end: 20040419
  9. CPT-11 (IRINOTECAN) (UNKNOWN) [Suspect]
     Indication: GLIOBLASTOMA MULTIFORME
     Dosage: 275 MG, EVERY WEEK TIMES 4 WEEKS, INTRAVENOUS
     Route: 042
     Dates: start: 20040426, end: 20040426
  10. KEPPRA [Concomitant]
  11. DEPAKOTE XR (VALPROATE SEMISODIUM) [Concomitant]
  12. COUMADIN [Concomitant]
  13. DECADRON [Concomitant]
  14. PEPCID [Concomitant]
  15. HYTRIN [Concomitant]
  16. PROSCAR [Concomitant]

REACTIONS (7)
  - CONVULSION [None]
  - DEEP VEIN THROMBOSIS [None]
  - DYSPNOEA [None]
  - FATIGUE [None]
  - OEDEMA PERIPHERAL [None]
  - PULMONARY EMBOLISM [None]
  - URINARY RETENTION [None]
